FAERS Safety Report 11198092 (Version 4)
Quarter: 2015Q3

REPORT INFORMATION
  Report Type: Spontaneous
  Country: JP (occurrence: JP)
  Receive Date: 20150618
  Receipt Date: 20150902
  Transmission Date: 20151125
  Serious: Yes (Hospitalization, Other)
  Sender: FDA-Public Use
  Company Number: JP-ROCHE-1595453

PATIENT
  Age: 57 Year
  Sex: Male
  Weight: 50 kg

DRUGS (9)
  1. CISPLATIN. [Concomitant]
     Active Substance: CISPLATIN
     Indication: LUNG ADENOCARCINOMA
     Dosage: DOSAGE IS UNCERTAIN. ?TWO COURSES
     Route: 041
     Dates: start: 20150724
  2. CISPLATIN. [Concomitant]
     Active Substance: CISPLATIN
     Indication: LUNG ADENOCARCINOMA
     Dosage: DOSAGE IS UNCERTAIN. ?TWO COURSES
     Route: 041
     Dates: start: 20150410, end: 20150605
  3. PANVITAN [Concomitant]
     Indication: PROPHYLAXIS
     Route: 048
  4. METHYCOBAL [Concomitant]
     Active Substance: METHYLCOBALAMIN
     Indication: NEUROPATHY PERIPHERAL
     Route: 048
  5. RINDERON V [Concomitant]
     Active Substance: BETAMETHASONE VALERATE
     Indication: BRAIN OEDEMA
     Route: 048
  6. LANSOPRAZOLE. [Concomitant]
     Active Substance: LANSOPRAZOLE
     Indication: GASTRITIS
     Route: 048
  7. AVASTIN [Suspect]
     Active Substance: BEVACIZUMAB
     Indication: LUNG ADENOCARCINOMA
     Dosage: TWO COURSES
     Route: 041
     Dates: start: 20150410, end: 20150605
  8. ALIMTA [Concomitant]
     Active Substance: PEMETREXED DISODIUM
     Indication: LUNG ADENOCARCINOMA
     Dosage: DOSAGE IS UNCERTAIN. ?TWO COURSES
     Route: 041
     Dates: start: 20150410, end: 20150605
  9. ALIMTA [Concomitant]
     Active Substance: PEMETREXED DISODIUM
     Indication: LUNG ADENOCARCINOMA
     Dosage: DOSAGE IS UNCERTAIN. ?TWO COURSES
     Route: 041
     Dates: start: 20150724

REACTIONS (4)
  - Abdominal abscess [Recovered/Resolved]
  - Pancreatic cyst rupture [Recovered/Resolved]
  - Pancreatic leak [Not Recovered/Not Resolved]
  - Gastrointestinal disorder [Unknown]

NARRATIVE: CASE EVENT DATE: 20150610
